FAERS Safety Report 5312254-8 (Version None)
Quarter: 2007Q2

REPORT INFORMATION
  Report Type: 
  Country: None (occurrence: None)
  Receive Date: 20070430
  Receipt Date: 20060824
  Transmission Date: 20071010
  Serious: No
  Sender: FDA-Public Use
  Company Number: 2006UW16801

PATIENT
  Age: 46 Year
  Sex: Male
  Weight: 61.2 kg

DRUGS (4)
  1. NEXIUM [Suspect]
     Indication: GASTROOESOPHAGEAL REFLUX DISEASE
     Route: 048
     Dates: start: 20030101, end: 20040101
  2. SINGULAIR [Concomitant]
  3. NASAL SPRAYS [Concomitant]
  4. ZOLOFT [Concomitant]

REACTIONS (2)
  - ANAEMIA [None]
  - BLOOD IRON DECREASED [None]
